FAERS Safety Report 12716258 (Version 1)
Quarter: 2016Q3

REPORT INFORMATION
  Report Type: Spontaneous
  Country: US (occurrence: US)
  Receive Date: 20160906
  Receipt Date: 20160906
  Transmission Date: 20161109
  Serious: Yes (Other)
  Sender: FDA-Public Use
  Company Number: None

PATIENT
  Age: 35 Year
  Sex: Female
  Weight: 67.05 kg

DRUGS (1)
  1. AMPHETAMINE ASPARTATE\AMPHETAMINE SULFATE\DEXTROAMPHETAMINE SACCHARATE\DEXTROAMPHETAMINE SULFATE [Suspect]
     Active Substance: AMPHETAMINE ASPARTATE\AMPHETAMINE SULFATE\DEXTROAMPHETAMINE SACCHARATE\DEXTROAMPHETAMINE SULFATE
     Indication: ATTENTION DEFICIT/HYPERACTIVITY DISORDER
     Route: 048
     Dates: start: 20160826, end: 20160826

REACTIONS (12)
  - Product substitution issue [None]
  - Platelet count decreased [None]
  - Hypertension [None]
  - Vertigo [None]
  - Nausea [None]
  - Drug ineffective [None]
  - Fatigue [None]
  - Depression [None]
  - Loss of consciousness [None]
  - Narcolepsy [None]
  - Activities of daily living impaired [None]
  - Product taste abnormal [None]

NARRATIVE: CASE EVENT DATE: 20160827
